FAERS Safety Report 9597092 (Version 2)
Quarter: 2013Q4

REPORT INFORMATION
  Report Type: Spontaneous
  Country: US (occurrence: US)
  Receive Date: 20131004
  Receipt Date: 20131230
  Transmission Date: 20140711
  Serious: Yes (Hospitalization, Other)
  Sender: FDA-Public Use
  Company Number: US-B.I. PHARMACEUTICALS,INC./RIDGEFIELD-2013-BI-30711BP

PATIENT
  Age: 66 Year
  Sex: Male
  Weight: 78 kg

DRUGS (23)
  1. SPIRIVA [Suspect]
     Indication: CHRONIC OBSTRUCTIVE PULMONARY DISEASE
     Dosage: 18 MCG
     Route: 048
     Dates: start: 2010
  2. PROMETHZINE [Concomitant]
     Route: 048
  3. BROVANA [Concomitant]
     Dosage: STRENGTH: 15MCG/2ML; DAILY DOSE: 30MCG/4ML
     Route: 055
  4. THEOPHYLLINE [Concomitant]
     Dosage: 400 MG
     Route: 048
  5. XANAX [Concomitant]
     Route: 048
  6. VITAMIN D 3 [Concomitant]
     Dosage: 1000 U
     Route: 048
  7. POTASSIUM CHLORIDE ER [Concomitant]
     Dosage: 10 MEQ
     Route: 048
  8. LASIX [Concomitant]
     Route: 048
  9. ASTELIN [Concomitant]
     Dosage: 548 MCG
     Route: 045
  10. PRO AIR HFA [Concomitant]
     Route: 055
  11. ALBUTEROL SULFATE [Concomitant]
     Dosage: STRENGTH: 0.083%;
     Route: 055
  12. REQUIP [Concomitant]
     Dosage: 2 MG
     Route: 048
  13. FOLIC ACID [Concomitant]
     Dosage: 1 MG
     Route: 048
  14. CLONAZEPAM [Concomitant]
     Dosage: 0.5 MG
     Route: 048
  15. VITAMIN B 12 [Concomitant]
     Dosage: 100 MCG
     Route: 048
  16. VITAMIN C [Concomitant]
     Dosage: 500 MG
     Route: 048
  17. LORTAB [Concomitant]
     Dosage: STRENGTH: 5/500MG;
     Route: 048
  18. BYSTOLIC [Concomitant]
     Dosage: 2.5 MG
     Route: 048
  19. ZOLOFT [Concomitant]
     Dosage: 25 MG
     Route: 048
  20. PREDNISONE [Concomitant]
     Route: 048
  21. SYNTHROID [Concomitant]
     Dosage: 88 MCG
     Route: 048
  22. LIPITOR [Concomitant]
     Dosage: 80 MG
     Route: 048
  23. CALCIUM [Concomitant]
     Dosage: 600 MG
     Route: 048

REACTIONS (9)
  - Pneumonia [Recovered/Resolved]
  - Chronic obstructive pulmonary disease [Recovered/Resolved]
  - Heart rate decreased [Recovered/Resolved]
  - Pneumonia [Recovered/Resolved]
  - Chronic obstructive pulmonary disease [Recovered/Resolved]
  - Pneumonia [Recovered/Resolved]
  - Chronic obstructive pulmonary disease [Recovered/Resolved]
  - Lung neoplasm malignant [Not Recovered/Not Resolved]
  - Prostate cancer metastatic [Unknown]
